FAERS Safety Report 6828515-7 (Version None)
Quarter: 2010Q3

REPORT INFORMATION
  Report Type: 
  Country: None (occurrence: None)
  Receive Date: 20100709
  Receipt Date: 20100701
  Transmission Date: 20110219
  Serious: Yes (Other)
  Sender: FDA-Public Use
  Company Number: BR-ABBOTT-10P-020-0636107-00

PATIENT
  Sex: Female
  Weight: 72 kg

DRUGS (10)
  1. HUMIRA [Suspect]
     Indication: RHEUMATOID ARTHRITIS
     Route: 058
  2. ARAVA [Concomitant]
     Indication: RHEUMATOID ARTHRITIS
     Route: 048
  3. PREDNISONE 5MG/ MELOXICAM 8MG [Concomitant]
     Indication: RHEUMATOID ARTHRITIS
     Dosage: 5MG/8MG
     Route: 048
  4. ATORVASTATIN [Concomitant]
     Indication: BLOOD CHOLESTEROL INCREASED
     Route: 048
  5. ATORVASTATIN [Concomitant]
     Route: 048
  6. ASPIRIN [Concomitant]
     Indication: ANTICOAGULANT THERAPY
     Route: 048
     Dates: start: 19920101
  7. ENALAPRIL MALEATE [Concomitant]
     Indication: HYPERTENSION
     Route: 048
  8. SELO-ZOK [Concomitant]
     Indication: ARRHYTHMIA PROPHYLAXIS
     Route: 048
  9. HYDROCHLOROTHIAZIDE [Concomitant]
     Indication: DIURETIC THERAPY
     Route: 048
  10. CINNARIZINE [Concomitant]
     Indication: LABYRINTHITIS
     Route: 048

REACTIONS (11)
  - ARTHRALGIA [None]
  - BLOOD CHOLESTEROL ABNORMAL [None]
  - DENTAL OPERATION [None]
  - FOOT DEFORMITY [None]
  - INJECTION SITE PAIN [None]
  - JOINT SWELLING [None]
  - LIMB INJURY [None]
  - LOCALISED OEDEMA [None]
  - PAIN IN EXTREMITY [None]
  - POST PROCEDURAL HAEMORRHAGE [None]
  - WEIGHT INCREASED [None]
